FAERS Safety Report 9976554 (Version 1)
Quarter: 2014Q1

REPORT INFORMATION
  Report Type: Report from Study
  Country: US (occurrence: US)
  Receive Date: 20140306
  Receipt Date: 20140306
  Transmission Date: 20141002
  Serious: No
  Sender: FDA-Public Use
  Company Number: US-ABBVIE-13P-163-1167360-00

PATIENT
  Sex: Female

DRUGS (11)
  1. HUMIRA [Suspect]
     Indication: RHEUMATOID ARTHRITIS
  2. ZONEGRAN [Concomitant]
     Indication: CONVULSION
     Dosage: 100 MG DAILY
  3. PROTONIX [Concomitant]
     Indication: DYSPEPSIA
     Dosage: 40 MG DAILY
  4. METHOTREXATE [Concomitant]
     Indication: RHEUMATOID ARTHRITIS
     Dosage: 25MG/0.8ML
  5. MORPHINE [Concomitant]
     Indication: PAIN
     Dosage: 15 MG 1/2 TAB TO 1 TAB EVERY 4 HOURS AS NEEDED
  6. ZOFRAN [Concomitant]
     Indication: NAUSEA
     Dosage: 8 MG 1/2 TAB EVERY 8 HOURS AS NEEDED
  7. IMITREX [Concomitant]
     Indication: MIGRAINE
  8. FOLIC ACID [Concomitant]
     Dosage: 1 MG DAILY
  9. ALENDRONATE [Concomitant]
     Indication: OSTEOPOROSIS
  10. CIPRO [Concomitant]
     Dates: start: 20131101
  11. METRONIDAZOLE [Concomitant]
     Dates: start: 20131101

REACTIONS (4)
  - Mobility decreased [Not Recovered/Not Resolved]
  - Rheumatoid arthritis [Not Recovered/Not Resolved]
  - Back pain [Recovering/Resolving]
  - Pain [Recovering/Resolving]
